FAERS Safety Report 6635488-9 (Version None)
Quarter: 2010Q1

REPORT INFORMATION
  Report Type: 
  Country: None (occurrence: None)
  Receive Date: 20100315
  Receipt Date: 20090629
  Transmission Date: 20100710
  Serious: No
  Sender: FDA-Public Use
  Company Number: US-ABBOTT-09P-163-0582740-00

PATIENT
  Sex: Female
  Weight: 62.198 kg

DRUGS (3)
  1. DEPAKOTE [Suspect]
     Indication: BIPOLAR DISORDER
     Dates: start: 20070101, end: 20080101
  2. DEPAKOTE ER [Suspect]
     Indication: ANXIETY
     Dates: start: 20090626
  3. LORAZEPAM [Suspect]
     Indication: SLEEP DISORDER
     Dosage: 1-2 MG AT HS

REACTIONS (6)
  - BLOOD TRIGLYCERIDES INCREASED [None]
  - DISTURBANCE IN ATTENTION [None]
  - FATIGUE [None]
  - MENTAL IMPAIRMENT [None]
  - ROSACEA [None]
  - WEIGHT INCREASED [None]
